FAERS Safety Report 7477257-6 (Version None)
Quarter: 2011Q2

REPORT INFORMATION
  Report Type: 
  Country: None (occurrence: None)
  Receive Date: 20110513
  Receipt Date: 20110503
  Transmission Date: 20111010
  Serious: Yes (Death)
  Sender: FDA-Public Use
  Company Number: US-BIOGENIDEC-2011BI016816

PATIENT
  Sex: Female

DRUGS (1)
  1. TYSABRI [Suspect]
     Indication: MULTIPLE SCLEROSIS
     Route: 042
     Dates: start: 20070322, end: 20070628

REACTIONS (3)
  - RESPIRATORY ARREST [None]
  - CEREBRAL HAEMORRHAGE [None]
  - ESSENTIAL HYPERTENSION [None]
